FAERS Safety Report 16318177 (Version 6)
Quarter: 2019Q3

REPORT INFORMATION
  Report Type: Spontaneous
  Country: US (occurrence: US)
  Receive Date: 20190516
  Receipt Date: 20190725
  Transmission Date: 20191004
  Serious: Yes (Other)
  Sender: FDA-Public Use
  Company Number: US-UNITED THERAPEUTICS-UNT-2019-008070

PATIENT
  Age: 78 Year
  Sex: Male
  Weight: 70.3 kg

DRUGS (6)
  1. TYVASO [Suspect]
     Active Substance: TREPROSTINIL
     Dosage: UNK
  2. MYCOPHENOLATE [Suspect]
     Active Substance: MYCOPHENOLIC ACID
     Indication: PRODUCT USED FOR UNKNOWN INDICATION
     Dosage: UNK
     Route: 065
  3. TYVASO [Suspect]
     Active Substance: TREPROSTINIL
     Indication: PULMONARY ARTERIAL HYPERTENSION
     Dosage: 18-54 MICROGRAMS, QID
     Dates: start: 20181211
  4. ADEMPAS [Suspect]
     Active Substance: RIOCIGUAT
     Indication: PRODUCT USED FOR UNKNOWN INDICATION
     Dosage: 2 MG, TID
     Route: 065
  5. TYVASO [Suspect]
     Active Substance: TREPROSTINIL
     Dosage: UNK
  6. TYVASO [Suspect]
     Active Substance: TREPROSTINIL
     Dosage: UNK

REACTIONS (10)
  - Abdominal pain [Unknown]
  - Diarrhoea [Recovering/Resolving]
  - Dyspnoea exertional [Not Recovered/Not Resolved]
  - Weight decreased [Unknown]
  - Abdominal distension [Not Recovered/Not Resolved]
  - Constipation [Unknown]
  - Hypotension [Unknown]
  - Flatulence [Unknown]
  - Skin cancer [Unknown]
  - Epistaxis [Unknown]

NARRATIVE: CASE EVENT DATE: 2019
